FAERS Safety Report 21830100 (Version 1)
Quarter: 2023Q1

REPORT INFORMATION
  Report Type: Report from Study
  Country: US (occurrence: None)
  Receive Date: 20230106
  Receipt Date: 20230106
  Transmission Date: 20230418
  Serious: Yes (Hospitalization)
  Sender: FDA-Public Use
  Company Number: US-ROCHE-3156705

PATIENT
  Age: 34 Year
  Sex: Male
  Weight: 92 kg

DRUGS (4)
  1. ATEZOLIZUMAB [Suspect]
     Active Substance: ATEZOLIZUMAB
     Indication: Adenocarcinoma of colon
     Dosage: ON 14/JUN/2022 RECEIVED LAST DOSE BEFORE EVENT
     Route: 041
     Dates: start: 20220614
  2. FLUOROURACIL [Suspect]
     Active Substance: FLUOROURACIL
     Indication: Adenocarcinoma of colon
     Dosage: 400MG/M2 IV (BOLUS) ON DAY 1 FOLLOWED BY 2400MG/M2 IV OVER 46 HOURS DAYS 1-3?ON 16/JUN/2022, RECEIVE
     Route: 040
     Dates: start: 20220614
  3. OXALIPLATIN [Suspect]
     Active Substance: OXALIPLATIN
     Indication: Adenocarcinoma of colon
     Dosage: ON 14/JUN/2022 RECEIVED LAST DOSE BEFORE EVENT
     Route: 042
     Dates: start: 20220614
  4. LEUCOVORIN CALCIUM [Suspect]
     Active Substance: LEUCOVORIN CALCIUM
     Indication: Adenocarcinoma of colon
     Dosage: ON 14/JUN/2022 RECEIVED LAST DOSE BEFORE EVENT
     Route: 042
     Dates: start: 20220614

REACTIONS (1)
  - Vascular device infection [Recovered/Resolved]

NARRATIVE: CASE EVENT DATE: 20220624
